FAERS Safety Report 16058971 (Version 2)
Quarter: 2019Q1

REPORT INFORMATION
  Report Type: Spontaneous
  Country: US (occurrence: US)
  Receive Date: 20190311
  Receipt Date: 20190322
  Transmission Date: 20190418
  Serious: No
  Sender: FDA-Public Use
  Company Number: US-GILEAD-2019-0395121

PATIENT
  Age: 58 Year
  Sex: Male
  Weight: 87.98 kg

DRUGS (1)
  1. ATRIPLA [Suspect]
     Active Substance: EFAVIRENZ\EMTRICITABINE\TENOFOVIR DISOPROXIL FUMARATE
     Indication: HIV INFECTION
     Dosage: UNK
     Route: 065
     Dates: start: 2008, end: 20190201

REACTIONS (5)
  - Blood cholesterol abnormal [Unknown]
  - Rash macular [Recovered/Resolved]
  - Nausea [Unknown]
  - Abnormal dreams [Unknown]
  - Feeling hot [Unknown]

NARRATIVE: CASE EVENT DATE: 2008
